FAERS Safety Report 4710924-3 (Version None)
Quarter: 2005Q2

REPORT INFORMATION
  Report Type: 
  Country: None (occurrence: None)
  Receive Date: 20050629
  Receipt Date: 20050414
  Transmission Date: 20051028
  Serious: No
  Sender: FDA-Public Use
  Company Number: 04P-163-0263715-00

PATIENT
  Age: 55 Year
  Sex: Female
  Weight: 62.5964 kg

DRUGS (6)
  1. HUMIRA [Suspect]
     Indication: RHEUMATOID ARTHRITIS
     Dosage: 40 MG, 1 IN 2 WK, SUBCUTANEOUS
     Route: 058
     Dates: start: 20031101
  2. METHOTREXATE [Concomitant]
  3. ROFECOXIB [Concomitant]
  4. CELECOXIB [Concomitant]
  5. ACETAMINOPHEN [Concomitant]
  6. BUPROPION HYDROCHLORIDE [Concomitant]

REACTIONS (4)
  - DRUG INEFFECTIVE [None]
  - EYE SWELLING [None]
  - INJECTION SITE URTICARIA [None]
  - NASAL CONGESTION [None]
